FAERS Safety Report 9308818 (Version 2)
Quarter: 2013Q2

REPORT INFORMATION
  Report Type: Report from Study
  Country: US (occurrence: US)
  Receive Date: 20130524
  Receipt Date: 20130626
  Transmission Date: 20140414
  Serious: Yes (Other)
  Sender: FDA-Public Use
  Company Number: US-ELI_LILLY_AND_COMPANY-US201202005081

PATIENT
  Age: 64 Year
  Sex: Female

DRUGS (10)
  1. TERIPARATIDE [Suspect]
     Indication: OSTEOPOROSIS POSTMENOPAUSAL
     Dosage: 20 UG, QD
  2. TERIPARATIDE [Suspect]
     Indication: BONE DENSITY DECREASED
     Dosage: 20 UG, QD
  3. TERIPARATIDE [Suspect]
     Dosage: 20 UG, QD
  4. TERIPARATIDE [Suspect]
     Dosage: 20 UG, QD
  5. TERIPARATIDE [Suspect]
     Dosage: 20 UG, QD
  6. TERIPARATIDE [Suspect]
     Dosage: 20 UG, QD
  7. NEURONTIN [Concomitant]
     Dosage: UNK
  8. ELAVIL [Concomitant]
     Dosage: UNK
  9. ZANAFLEX [Concomitant]
     Dosage: UNK
  10. LORTAB [Concomitant]
     Dosage: UNK

REACTIONS (20)
  - Dystonia [Not Recovered/Not Resolved]
  - Nervousness [Unknown]
  - Feeling abnormal [Unknown]
  - Injection site rash [Recovered/Resolved]
  - Injection site rash [Unknown]
  - Fatigue [Not Recovered/Not Resolved]
  - Amnesia [Unknown]
  - Asthenia [Unknown]
  - Drug dose omission [Unknown]
  - Fracture [Unknown]
  - Fall [Unknown]
  - Head injury [Unknown]
  - Clavicle fracture [Unknown]
  - Stress [Unknown]
  - Myalgia [Not Recovered/Not Resolved]
  - Foot fracture [Unknown]
  - Laryngitis [Unknown]
  - Arthralgia [Unknown]
  - Overdose [Unknown]
  - Nausea [Recovered/Resolved]
